FAERS Safety Report 7362124-9 (Version None)
Quarter: 2011Q1

REPORT INFORMATION
  Report Type: 
  Country: None (occurrence: None)
  Receive Date: 20110318
  Receipt Date: 20110221
  Transmission Date: 20110831
  Serious: No
  Sender: FDA-Public Use
  Company Number: US-B.I. PHARMACEUTICALS,INC./RIDGEFIELD-2011-BP-01155BP

PATIENT
  Sex: Male

DRUGS (12)
  1. CLONIDINE [Concomitant]
     Indication: HYPERTENSION
     Dosage: 0.2 MG
     Dates: start: 20050101
  2. ALLOPURINOL [Concomitant]
     Indication: GOUT
     Dosage: 300 MG
     Dates: start: 20050101
  3. KLONOPIN [Concomitant]
     Indication: INSOMNIA
     Dosage: 2 MG
     Route: 048
     Dates: start: 20050101
  4. PRADAXA [Suspect]
     Indication: ATRIAL FIBRILLATION
     Dosage: 300 MG
     Route: 048
     Dates: start: 20101210
  5. LEVOXYL [Concomitant]
     Indication: HYPOTHYROIDISM
     Dosage: 0.112 MCG
     Dates: start: 20050101
  6. CARDIZEM [Concomitant]
     Indication: CARDIAC DISORDER
     Dosage: 240 MG
     Dates: start: 20050101
  7. PANTOPRAZOLE [Concomitant]
     Indication: DYSPEPSIA
     Dosage: 40 MG
     Route: 048
     Dates: start: 20101111
  8. GLUCOTROL XL [Concomitant]
     Indication: DIABETES MELLITUS
     Dosage: 20 MG
     Dates: start: 20050101
  9. LIPITOR [Concomitant]
     Indication: BLOOD CHOLESTEROL INCREASED
     Dosage: 20 MG
     Dates: start: 20050101
  10. LANOXIN [Concomitant]
     Indication: CARDIAC DISORDER
     Dosage: 0.25 MG
     Dates: start: 20050101
  11. MAXZIDE [Concomitant]
     Indication: HYPERTENSION
     Route: 048
     Dates: start: 20050101
  12. ACTOS [Concomitant]
     Indication: DIABETES MELLITUS
     Dosage: 30 MG
     Dates: start: 20050101

REACTIONS (5)
  - HEADACHE [None]
  - ARTHRALGIA [None]
  - DIZZINESS [None]
  - MYALGIA [None]
  - ABASIA [None]
